APPROVED DRUG PRODUCT: FOSINOPRIL SODIUM
Active Ingredient: FOSINOPRIL SODIUM
Strength: 10MG
Dosage Form/Route: TABLET;ORAL
Application: A076987 | Product #001
Applicant: WATSON LABORATORIES INC
Approved: Dec 23, 2004 | RLD: No | RS: No | Type: DISCN